FAERS Safety Report 14939958 (Version 3)
Quarter: 2020Q1

REPORT INFORMATION
  Report Type: Spontaneous
  Country: FR (occurrence: FR)
  Receive Date: 20180525
  Receipt Date: 20200123
  Transmission Date: 20200409
  Serious: Yes (Hospitalization)
  Sender: FDA-Public Use
  Company Number: FR-PFIZER INC-2018210652

PATIENT
  Age: 87 Year
  Sex: Male
  Weight: 83 kg

DRUGS (6)
  1. SALBUTAMOL [Suspect]
     Active Substance: ALBUTEROL
     Indication: DYSPNOEA
     Dosage: 5 MG, 1X/DAY
     Route: 055
     Dates: start: 20180213, end: 20180213
  2. ROCEPHINE [Suspect]
     Active Substance: CEFTRIAXONE SODIUM
     Indication: LUNG DISORDER
     Dosage: 1 G, SINGLE
     Route: 042
     Dates: start: 20180213, end: 20180213
  3. PERFALGAN [Suspect]
     Active Substance: ACETAMINOPHEN
     Indication: PYREXIA
     Dosage: 2 G, 1X/DAY
     Route: 042
     Dates: start: 20180213, end: 20180213
  4. ATROVENT [Suspect]
     Active Substance: IPRATROPIUM BROMIDE
     Indication: DYSPNOEA
     Dosage: 2 DF, 1X/DAY
     Route: 055
     Dates: start: 20180213, end: 20180213
  5. SOLU-MEDROL [Suspect]
     Active Substance: METHYLPREDNISOLONE SODIUM SUCCINATE
     Indication: URTICARIA
     Dosage: 80 MG, SINGLE
     Route: 042
     Dates: start: 20180213, end: 20180213
  6. POLARAMINE [Suspect]
     Active Substance: DEXCHLORPHENIRAMINE MALEATE
     Indication: URTICARIA
     Dosage: 5 MG, SINGLE
     Route: 042
     Dates: start: 20180213, end: 20180213

REACTIONS (1)
  - Anaphylactic shock [Recovered/Resolved]

NARRATIVE: CASE EVENT DATE: 20180213
